FAERS Safety Report 12040276 (Version 1)
Quarter: 2016Q1

REPORT INFORMATION
  Report Type: Spontaneous
  Country: US (occurrence: US)
  Receive Date: 20160208
  Receipt Date: 20160208
  Transmission Date: 20160526
  Serious: Yes (Other)
  Sender: FDA-Public Use
  Company Number: US-GLAXOSMITHKLINE-US2016016803

PATIENT
  Sex: Female

DRUGS (1)
  1. VENTOLIN HFA [Suspect]
     Active Substance: ALBUTEROL SULFATE
     Indication: CHRONIC OBSTRUCTIVE PULMONARY DISEASE
     Dosage: 2 PUFF(S), QID
     Route: 055
     Dates: start: 2015

REACTIONS (4)
  - Throat cancer [Recovered/Resolved]
  - Angiogram [Recovered/Resolved]
  - Mass excision [Unknown]
  - Nasal septal operation [Recovering/Resolving]

NARRATIVE: CASE EVENT DATE: 2015
